FAERS Safety Report 16255228 (Version 1)
Quarter: 2019Q2

REPORT INFORMATION
  Report Type: Spontaneous
  Country: US (occurrence: US)
  Receive Date: 20190430
  Receipt Date: 20190430
  Transmission Date: 20190711
  Serious: Yes (Hospitalization)
  Sender: FDA-Public Use
  Company Number: US-RADIUS HEALTH INC.-2019US000898

PATIENT
  Age: 87 Year
  Sex: Female

DRUGS (3)
  1. TYMLOS [Suspect]
     Active Substance: ABALOPARATIDE
     Indication: BONE LOSS
     Dosage: 80 MCG, DAILY
     Route: 058
     Dates: start: 20190216
  2. TYMLOS [Suspect]
     Active Substance: ABALOPARATIDE
     Indication: OSTEOPOROSIS POSTMENOPAUSAL
  3. OXYGEN. [Concomitant]
     Active Substance: OXYGEN
     Indication: CHRONIC OBSTRUCTIVE PULMONARY DISEASE
     Dosage: UNK, CONTINUOUS
     Route: 065

REACTIONS (2)
  - Underdose [Recovering/Resolving]
  - Pneumonia influenzal [Recovering/Resolving]

NARRATIVE: CASE EVENT DATE: 20190311
